FAERS Safety Report 24647511 (Version 1)
Quarter: 2024Q4

REPORT INFORMATION
  Report Type: Spontaneous
  Country: US (occurrence: None)
  Receive Date: 20241121
  Receipt Date: 20241121
  Transmission Date: 20250115
  Serious: Yes (Other)
  Sender: Public
  Company Number: None

PATIENT
  Age: 42 Year
  Sex: Female

DRUGS (20)
  1. VYEPTI [Suspect]
     Active Substance: EPTINEZUMAB-JJMR
     Indication: Migraine
     Dosage: OTHER QUANTITY : 1 1;?OTHER FREQUENCY : EVERY 12 WEEKS;?
     Route: 042
  2. EMETERM [Concomitant]
  3. METHYLPHENIDATE [Concomitant]
     Active Substance: METHYLPHENIDATE
  4. LEXAPRO [Concomitant]
     Active Substance: ESCITALOPRAM OXALATE
  5. NEXIUM [Concomitant]
     Active Substance: ESOMEPRAZOLE MAGNESIUM
  6. TIZANIDINE [Concomitant]
     Active Substance: TIZANIDINE
  7. ALPRAZOLAM [Concomitant]
     Active Substance: ALPRAZOLAM
  8. CANDESARTAN [Concomitant]
     Active Substance: CANDESARTAN
  9. BOTOX [Concomitant]
     Active Substance: ONABOTULINUMTOXINA
  10. OLANZAPINE [Concomitant]
     Active Substance: OLANZAPINE
  11. PROMETHAZINE [Concomitant]
     Active Substance: PROMETHAZINE HYDROCHLORIDE
  12. COMPAZINE [Concomitant]
     Active Substance: PROCHLORPERAZINE MALEATE
  13. MIRENA [Concomitant]
     Active Substance: LEVONORGESTREL
  14. REYVOW [Concomitant]
     Active Substance: LASMIDITAN
  15. ZOLPIDEM [Concomitant]
     Active Substance: ZOLPIDEM TARTRATE
  16. TORADOL [Concomitant]
     Active Substance: KETOROLAC TROMETHAMINE
  17. DIHYDROERGOTAMINE MESYLATE [Concomitant]
     Active Substance: DIHYDROERGOTAMINE MESYLATE
  18. B2 [Concomitant]
  19. MAGNESIUM [Concomitant]
     Active Substance: MAGNESIUM
  20. COENZYME Q10 [Concomitant]
     Active Substance: DIETARY SUPPLEMENT\UBIDECARENONE

REACTIONS (3)
  - Muscle spasms [None]
  - Muscle spasms [None]
  - Hepatic enzyme increased [None]

NARRATIVE: CASE EVENT DATE: 20240524
